FAERS Safety Report 4445999-2 (Version None)
Quarter: 2004Q3

REPORT INFORMATION
  Report Type: 
  Country: None (occurrence: None)
  Receive Date: 20040907
  Receipt Date: 20040823
  Transmission Date: 20050211
  Serious: Yes (Hospitalization)
  Sender: FDA-Public Use
  Company Number: 2004S1000074

PATIENT
  Age: 54 Year
  Sex: Male

DRUGS (3)
  1. SORIATANE (25 MG) [Suspect]
     Indication: PSORIASIS
     Dosage: 25 MG BID PO
     Route: 048
     Dates: start: 20040520, end: 20040624
  2. NORVASC [Concomitant]
  3. BENICAR [Concomitant]

REACTIONS (3)
  - ASTHENIA [None]
  - HYPOAESTHESIA [None]
  - PARAESTHESIA [None]
